FAERS Safety Report 7804947-5 (Version None)
Quarter: 2011Q4

REPORT INFORMATION
  Report Type: 
  Country: None (occurrence: None)
  Receive Date: 20111010
  Receipt Date: 20111004
  Transmission Date: 20120403
  Serious: Yes (Hospitalization)
  Sender: FDA-Public Use
  Company Number: PHHO2011NL13691

PATIENT
  Sex: Female
  Weight: 71 kg

DRUGS (8)
  1. PERINDOPRIL ERBUMINE [Suspect]
  2. METOPROLOL TARTRATE [Suspect]
  3. BLINDED ALISKIREN [Suspect]
     Indication: CARDIOVASCULAR DISORDER
     Dosage: CODE NOT BROKEN
     Dates: start: 20080519, end: 20110810
  4. FUROSEMIDE [Suspect]
  5. AMLODIPINE [Suspect]
  6. ATORVASTATIN [Concomitant]
     Indication: PROPHYLAXIS
     Dosage: 40 MG, QD
     Dates: start: 20070101
  7. BLINDED NO TREATMENT RECEIVED [Suspect]
     Indication: CARDIOVASCULAR DISORDER
     Dosage: CODE NOT BROKEN
     Dates: start: 20080519, end: 20110810
  8. BLINDED PLACEBO [Suspect]
     Indication: CARDIOVASCULAR DISORDER
     Dosage: CODE NOT BROKEN
     Dates: start: 20080519, end: 20110810

REACTIONS (2)
  - CONCOMITANT DISEASE PROGRESSION [None]
  - PERIPHERAL VASCULAR DISORDER [None]
